FAERS Safety Report 12971830 (Version 1)
Quarter: 2016Q4

REPORT INFORMATION
  Report Type: Spontaneous
  Country: US (occurrence: US)
  Receive Date: 20161124
  Receipt Date: 20161124
  Transmission Date: 20170207
  Serious: Yes (Other)
  Sender: FDA-Public Use
  Company Number: US-ROCHE-1857568

PATIENT
  Sex: Female

DRUGS (2)
  1. XELODA [Suspect]
     Active Substance: CAPECITABINE
     Indication: PRODUCT USED FOR UNKNOWN INDICATION
     Dosage: AM
     Route: 048
     Dates: start: 201607
  2. XELODA [Suspect]
     Active Substance: CAPECITABINE
     Dosage: PM
     Route: 048
     Dates: start: 201607

REACTIONS (1)
  - Apparent death [Unknown]
